FAERS Safety Report 8141720-5 (Version None)
Quarter: 2012Q1

REPORT INFORMATION
  Report Type: 
  Country: None (occurrence: None)
  Receive Date: 20120216
  Receipt Date: 20120214
  Transmission Date: 20120608
  Serious: Yes (Other)
  Sender: FDA-Public Use
  Company Number: PHHY2012ES012845

PATIENT
  Age: 23 Year
  Sex: Male

DRUGS (2)
  1. TEGRETOL [Suspect]
     Indication: TRIGEMINAL NEURALGIA
     Dosage: 600 MG, QD
     Route: 048
     Dates: start: 20120125, end: 20120127
  2. DEXKETOPROFEN [Concomitant]

REACTIONS (2)
  - DELIRIUM [None]
  - DEPRESSED LEVEL OF CONSCIOUSNESS [None]
